FAERS Safety Report 13519558 (Version 2)
Quarter: 2017Q3

REPORT INFORMATION
  Report Type: Spontaneous
  Country: DE (occurrence: DE)
  Receive Date: 20170505
  Receipt Date: 20170817
  Transmission Date: 20171127
  Serious: Yes (Other)
  Sender: FDA-Public Use
  Company Number: DE-ALLERGAN-1508796US

PATIENT
  Age: 75 Year
  Sex: Female

DRUGS (4)
  1. VALSARTAN COMP [Concomitant]
     Active Substance: HYDROCHLOROTHIAZIDE\VALSARTAN
  2. TIMOCOMOD [Concomitant]
     Indication: GLAUCOMA
     Dosage: UNK
  3. JOD [Concomitant]
  4. LUMIGAN [Suspect]
     Active Substance: BIMATOPROST
     Indication: GLAUCOMA
     Dosage: UNK
     Route: 047
     Dates: start: 201408, end: 201507

REACTIONS (2)
  - Metastasis [Unknown]
  - Tumour marker increased [Recovering/Resolving]

NARRATIVE: CASE EVENT DATE: 201408
